FAERS Safety Report 25094167 (Version 2)
Quarter: 2025Q2

REPORT INFORMATION
  Report Type: Spontaneous
  Country: US (occurrence: US)
  Receive Date: 20250319
  Receipt Date: 20250516
  Transmission Date: 20250717
  Serious: No
  Sender: SANOFI AVENTIS
  Company Number: US-SA-2025SA078998

PATIENT
  Age: 71 Year
  Sex: Female

DRUGS (2)
  1. DUPIXENT [Suspect]
     Active Substance: DUPILUMAB
     Indication: Chronic rhinosinusitis with nasal polyps
     Dosage: 300 MG, QOW
     Route: 058
     Dates: start: 20250127
  2. LEVAQUIN [Concomitant]
     Active Substance: LEVOFLOXACIN

REACTIONS (5)
  - Sinusitis [Unknown]
  - Asthenia [Unknown]
  - Fatigue [Unknown]
  - Nasal polypectomy [Unknown]
  - Inappropriate schedule of product administration [Unknown]

NARRATIVE: CASE EVENT DATE: 20250227
